FAERS Safety Report 23123385 (Version 2)
Quarter: 2023Q4

REPORT INFORMATION
  Report Type: Spontaneous
  Country: US (occurrence: US)
  Receive Date: 20231030
  Receipt Date: 20231107
  Transmission Date: 20240110
  Serious: No
  Sender: FDA-Public Use
  Company Number: US-OPELLA-2023OHG009411

PATIENT
  Sex: Female

DRUGS (1)
  1. ACT ANTICAVITY FLUORIDE FRESH MINT [Suspect]
     Active Substance: SODIUM FLUORIDE
     Indication: Product used for unknown indication
     Dosage: DOSAGE STRENGTH:200 G/1 L
     Route: 065

REACTIONS (1)
  - Tooth discolouration [Unknown]
